FAERS Safety Report 9915569 (Version 1)
Quarter: 2014Q1

REPORT INFORMATION
  Report Type: Spontaneous
  Country: BR (occurrence: BR)
  Receive Date: 20140221
  Receipt Date: 20140221
  Transmission Date: 20141002
  Serious: Yes (Other)
  Sender: FDA-Public Use
  Company Number: BR-AMGEN-BRASP2014012133

PATIENT
  Age: 64 Year
  Sex: Female
  Weight: 70 kg

DRUGS (4)
  1. ENBREL [Suspect]
     Indication: RHEUMATOID ARTHRITIS
     Dosage: 50 MG, ONCE WEEKLY
     Route: 058
     Dates: start: 2013, end: 201312
  2. PURAN T4 [Concomitant]
     Dosage: 1 TABLET (100 MG), 1X/DAY
     Route: 048
  3. FLUOXETINE [Concomitant]
     Dosage: 1 TABLET (20 MG), 2X/DAY
     Route: 048
  4. LITHIUM CARBONATE [Concomitant]
     Dosage: 1 TABLET (UNSPECIFIED DOSE), 1X/DAY
     Route: 048

REACTIONS (3)
  - Dementia Alzheimer^s type [Unknown]
  - Depression [Unknown]
  - Memory impairment [Unknown]
